FAERS Safety Report 9901162 (Version 1)
Quarter: 2014Q1

REPORT INFORMATION
  Report Type: Spontaneous
  Country: US (occurrence: US)
  Receive Date: 20140217
  Receipt Date: 20140217
  Transmission Date: 20141002
  Serious: Yes (Other)
  Sender: FDA-Public Use
  Company Number: US-PFIZER INC-2014044866

PATIENT
  Age: 54 Year
  Sex: Female
  Weight: 126.98 kg

DRUGS (10)
  1. LYRICA [Suspect]
     Indication: HERPES ZOSTER
     Dosage: 75 MG, 2X/DAY
     Dates: start: 2007
  2. LYRICA [Suspect]
     Indication: NEURALGIA
  3. VITAMIN B12 [Concomitant]
     Dosage: UNK
  4. VITAMIN D3 [Concomitant]
     Dosage: UNK
  5. FISH OIL [Concomitant]
     Dosage: UNK
  6. FLUOXETINE [Concomitant]
     Dosage: 40 MG, DAILY
  7. FIBERCON [Concomitant]
     Dosage: UNK, DAILY
  8. MIRALAX [Concomitant]
     Dosage: UNK, AS NEEDED
  9. PROPRANOLOL [Concomitant]
     Indication: HYPERTENSION
     Dosage: 10 MG, 2X/DAY
  10. PRAVASTATIN [Concomitant]
     Indication: BLOOD CHOLESTEROL INCREASED
     Dosage: 40 MG, 2X/DAY

REACTIONS (1)
  - Weight increased [Unknown]
